FAERS Safety Report 5586991-4 (Version None)
Quarter: 2008Q1

REPORT INFORMATION
  Report Type: 
  Country: None (occurrence: None)
  Receive Date: 20080110
  Receipt Date: 20080102
  Transmission Date: 20080703
  Serious: Yes (Other)
  Sender: FDA-Public Use
  Company Number: A0676796A

PATIENT
  Age: 42 Year
  Sex: Male
  Weight: 79.1 kg

DRUGS (2)
  1. PAXIL CR [Suspect]
     Indication: PANIC ATTACK
     Dosage: 20MG PER DAY
     Route: 048
     Dates: end: 20050101
  2. XANAX [Concomitant]

REACTIONS (41)
  - ADRENAL INSUFFICIENCY [None]
  - ANXIETY [None]
  - APATHY [None]
  - ARTHROPATHY [None]
  - ASTHENIA [None]
  - BALANCE DISORDER [None]
  - BRUXISM [None]
  - CHOKING SENSATION [None]
  - COGNITIVE DISORDER [None]
  - CONFUSIONAL STATE [None]
  - CRYING [None]
  - DEPRESSED MOOD [None]
  - DIARRHOEA [None]
  - DISSOCIATION [None]
  - DISTURBANCE IN ATTENTION [None]
  - DIZZINESS [None]
  - DYSARTHRIA [None]
  - FALL [None]
  - FEELING ABNORMAL [None]
  - HAIR DISORDER [None]
  - HALLUCINATION [None]
  - HYPOKINESIA [None]
  - ILLITERACY [None]
  - LIBIDO DECREASED [None]
  - LOSS OF LIBIDO [None]
  - LOSS OF PROPRIOCEPTION [None]
  - MEMORY IMPAIRMENT [None]
  - MENTAL IMPAIRMENT [None]
  - MOTOR DYSFUNCTION [None]
  - MUSCLE FATIGUE [None]
  - MUSCULAR WEAKNESS [None]
  - NAIL DISORDER [None]
  - NERVOUSNESS [None]
  - PAIN [None]
  - PANIC ATTACK [None]
  - PARAESTHESIA [None]
  - RESPIRATORY ARREST [None]
  - SEXUAL DYSFUNCTION [None]
  - VISION BLURRED [None]
  - VISUAL DISTURBANCE [None]
  - WITHDRAWAL SYNDROME [None]
